FAERS Safety Report 10248113 (Version 2)
Quarter: 2014Q2

REPORT INFORMATION
  Report Type: Spontaneous
  Country: JP (occurrence: JP)
  Receive Date: 20140619
  Receipt Date: 20140619
  Transmission Date: 20141212
  Serious: Yes (Other)
  Sender: FDA-Public Use
  Company Number: JP-AMGEN-JPNSP2012066810

PATIENT
  Sex: Male

DRUGS (9)
  1. NPLATE [Suspect]
     Indication: IMMUNE THROMBOCYTOPENIC PURPURA
     Dosage: 2 MUG/KG, QWK
     Route: 058
     Dates: start: 20120828, end: 20120925
  2. CONIEL [Concomitant]
     Dosage: UNK
     Route: 048
  3. ZESTRIL [Concomitant]
     Dosage: UNK
     Route: 048
  4. BEZATOL SR [Concomitant]
     Dosage: UNK
     Route: 048
  5. PAMILCON [Concomitant]
     Dosage: UNK
     Route: 048
  6. MICOMBI COMBINATION [Concomitant]
     Dosage: UNK
     Route: 048
  7. JANUVIA [Concomitant]
     Dosage: UNK
     Route: 048
  8. ATELEC [Concomitant]
     Dosage: UNK
     Route: 048
  9. PIOGLITAZONE [Concomitant]
     Dosage: UNK
     Route: 048

REACTIONS (1)
  - Haemolytic anaemia [Not Recovered/Not Resolved]
